FAERS Safety Report 6377679-0 (Version None)
Quarter: 2009Q3

REPORT INFORMATION
  Report Type: 
  Country: None (occurrence: None)
  Receive Date: 20090925
  Receipt Date: 20090918
  Transmission Date: 20100115
  Serious: Yes (Hospitalization)
  Sender: FDA-Public Use
  Company Number: CHPA2009US18942

PATIENT
  Age: 61 Year
  Sex: Female
  Weight: 74.83 kg

DRUGS (4)
  1. PRIVATE LABEL (NCH) [Suspect]
     Indication: SMOKING CESSATION THERAPY
     Dosage: 14 MG, QD
     Route: 062
     Dates: end: 20090301
  2. PRIVATE LABEL (NCH) [Suspect]
     Dosage: 21 MG, QD
     Route: 062
     Dates: start: 20090201
  3. PRIVATE LABEL (NCH) [Suspect]
     Dosage: 21 MG, QD
     Route: 062
     Dates: start: 20081201, end: 20081201
  4. PRIVATE LABEL (NCH) [Suspect]
     Dosage: 21 MG, QD
     Route: 062
     Dates: start: 20080101, end: 20080101

REACTIONS (4)
  - DEPRESSED MOOD [None]
  - DIVERTICULITIS [None]
  - HERNIA REPAIR [None]
  - SURGERY [None]
